FAERS Safety Report 6675264-4 (Version None)
Quarter: 2010Q2

REPORT INFORMATION
  Report Type: 
  Country: None (occurrence: None)
  Receive Date: 20100409
  Receipt Date: 20091221
  Transmission Date: 20101027
  Serious: No
  Sender: FDA-Public Use
  Company Number: A0836215A

PATIENT
  Age: 49 Year
  Sex: Female

DRUGS (8)
  1. TYKERB [Suspect]
     Indication: BREAST CANCER
     Dosage: 1250MG PER DAY
     Route: 048
     Dates: start: 20091216
  2. XELODA [Concomitant]
  3. CO-Q10 [Concomitant]
  4. VITAMIN B-12 [Concomitant]
  5. PROTONIX [Concomitant]
  6. ENABLEX [Concomitant]
  7. LORTAB [Concomitant]
  8. XANAX [Concomitant]

REACTIONS (4)
  - DIARRHOEA [None]
  - FATIGUE [None]
  - NAUSEA [None]
  - THERAPEUTIC RESPONSE UNEXPECTED [None]
